FAERS Safety Report 8251687-7 (Version None)
Quarter: 2012Q1

REPORT INFORMATION
  Report Type: 
  Country: None (occurrence: None)
  Receive Date: 20120328
  Receipt Date: 20120319
  Transmission Date: 20120608
  Serious: Yes (Other)
  Sender: FDA-Public Use
  Company Number: 2010MA002621

PATIENT
  Sex: Female
  Weight: 54.4316 kg

DRUGS (20)
  1. NEXIUM [Concomitant]
  2. CELESTONE [Concomitant]
  3. ANTIBIOTICS [Concomitant]
  4. CEFUROXIME [Concomitant]
  5. ACYCLOVIR [Concomitant]
  6. ZEGERID [Concomitant]
  7. CARAFATE [Concomitant]
  8. FLUCONAZOLE [Concomitant]
  9. LIPITOR [Concomitant]
  10. MUPIROCIN [Concomitant]
  11. PROMETHAZINE [Concomitant]
  12. PREDNISONE TAB [Concomitant]
  13. DIOVAN [Concomitant]
  14. BOTOX [Concomitant]
  15. CYMBALTA [Concomitant]
  16. METOCLOPRAMIDE [Suspect]
     Indication: GASTROOESOPHAGEAL REFLUX DISEASE
     Dosage: 10 MG;PO
     Route: 048
     Dates: start: 20070213, end: 20090513
  17. RESTASIS [Concomitant]
  18. DOXYCYCLINE [Concomitant]
  19. FAMOTIDINE [Concomitant]
  20. MEPERIDINE HCL [Concomitant]

REACTIONS (20)
  - HEADACHE [None]
  - MYALGIA [None]
  - HYPOAESTHESIA [None]
  - DYSTONIA [None]
  - TINNITUS [None]
  - DYSARTHRIA [None]
  - DIZZINESS [None]
  - SINUSITIS [None]
  - EXTRAPYRAMIDAL DISORDER [None]
  - HALO VISION [None]
  - EMOTIONAL DISORDER [None]
  - FACIAL SPASM [None]
  - INJURY [None]
  - UPPER RESPIRATORY TRACT INFECTION [None]
  - EYE SWELLING [None]
  - TARDIVE DYSKINESIA [None]
  - ECONOMIC PROBLEM [None]
  - MEIGE'S SYNDROME [None]
  - EYE PAIN [None]
  - DRY EYE [None]
